FAERS Safety Report 16111547 (Version 4)
Quarter: 2019Q4

REPORT INFORMATION
  Report Type: Spontaneous
  Country: US (occurrence: US)
  Receive Date: 20190325
  Receipt Date: 20191114
  Transmission Date: 20200122
  Serious: Yes (Other)
  Sender: FDA-Public Use
  Company Number: US-ASTRAZENECA-2018SF13632

PATIENT
  Sex: Male
  Weight: 102.1 kg

DRUGS (26)
  1. TYLENOL [Concomitant]
     Active Substance: ACETAMINOPHEN
  2. CEPHALEXIN. [Concomitant]
     Active Substance: CEPHALEXIN
  3. DOXEPIN [Concomitant]
     Active Substance: DOXEPIN
  4. LANSOPRAZOLE. [Suspect]
     Active Substance: LANSOPRAZOLE
     Indication: GASTROOESOPHAGEAL REFLUX DISEASE
     Route: 065
     Dates: start: 201204, end: 201401
  5. ALLOPURINOL. [Concomitant]
     Active Substance: ALLOPURINOL
  6. AMLODIPINE [Concomitant]
     Active Substance: AMLODIPINE BESYLATE
  7. ALLOPURINOL. [Concomitant]
     Active Substance: ALLOPURINOL
     Indication: GOUT
  8. NEXIUM 24HR [Suspect]
     Active Substance: ESOMEPRAZOLE MAGNESIUM
     Route: 048
     Dates: start: 2000, end: 2014
  9. SIMVASTATIN. [Concomitant]
     Active Substance: SIMVASTATIN
  10. LOSARTAN. [Concomitant]
     Active Substance: LOSARTAN
  11. NEXIUM [Suspect]
     Active Substance: ESOMEPRAZOLE MAGNESIUM
     Indication: GASTROOESOPHAGEAL REFLUX DISEASE
     Route: 048
     Dates: start: 2000, end: 2014
  12. ZANTAC [Concomitant]
     Active Substance: RANITIDINE HYDROCHLORIDE
  13. CARAFATE [Concomitant]
     Active Substance: SUCRALFATE
  14. LEVAQUIN [Concomitant]
     Active Substance: LEVOFLOXACIN
  15. DIOVAN [Concomitant]
     Active Substance: VALSARTAN
  16. SIMVASTATIN. [Concomitant]
     Active Substance: SIMVASTATIN
  17. VALSARTAN. [Concomitant]
     Active Substance: VALSARTAN
  18. LANSOPRAZOLE. [Suspect]
     Active Substance: LANSOPRAZOLE
     Indication: GASTROOESOPHAGEAL REFLUX DISEASE
     Route: 065
  19. VALSARTAN. [Concomitant]
     Active Substance: VALSARTAN
  20. ZOLPIDEM [Concomitant]
     Active Substance: ZOLPIDEM TARTRATE
  21. AMOXICILLIN. [Concomitant]
     Active Substance: AMOXICILLIN
  22. LATANOPROST. [Concomitant]
     Active Substance: LATANOPROST
  23. METHOTREXATE. [Concomitant]
     Active Substance: METHOTREXATE
  24. NEXIUM [Suspect]
     Active Substance: ESOMEPRAZOLE MAGNESIUM
     Indication: GASTROOESOPHAGEAL REFLUX DISEASE
     Route: 048
     Dates: start: 2007, end: 2014
  25. ENALAPRIL [Concomitant]
     Active Substance: ENALAPRIL
     Indication: BLOOD PRESSURE MEASUREMENT
  26. TRAMADOL. [Concomitant]
     Active Substance: TRAMADOL

REACTIONS (2)
  - Chronic kidney disease [Not Recovered/Not Resolved]
  - Renal failure [Unknown]
